FAERS Safety Report 5084267-5 (Version None)
Quarter: 2006Q3

REPORT INFORMATION
  Report Type: 
  Country: None (occurrence: None)
  Receive Date: 20060817
  Receipt Date: 20060817
  Transmission Date: 20061208
  Serious: No
  Sender: FDA-Public Use
  Company Number: None

PATIENT
  Sex: Female
  Weight: 80.2867 kg

DRUGS (1)
  1. SINEMET [Suspect]
     Dosage: 2 TABS  TID   PO
     Route: 048

REACTIONS (1)
  - DRUG INEFFECTIVE [None]
